FAERS Safety Report 20094534 (Version 3)
Quarter: 2022Q3

REPORT INFORMATION
  Report Type: Report from Study
  Country: US (occurrence: US)
  Receive Date: 20211122
  Receipt Date: 20220819
  Transmission Date: 20221027
  Serious: Yes (Hospitalization)
  Sender: FDA-Public Use
  Company Number: US-ACADIA PHARMACEUTICALS INC.-ACA-2021-PIM-003841

PATIENT
  Age: 74 Year
  Sex: Male
  Weight: 121 kg

DRUGS (20)
  1. NUPLAZID [Suspect]
     Active Substance: PIMAVANSERIN TARTRATE
     Indication: Parkinson^s disease psychosis
     Dosage: 34 MILLIGRAM, QD
     Route: 065
     Dates: start: 20201218
  2. NUPLAZID [Suspect]
     Active Substance: PIMAVANSERIN TARTRATE
     Indication: Hallucination
     Dosage: 34 MILLIGRAM, QD
     Route: 048
  3. NUPLAZID [Suspect]
     Active Substance: PIMAVANSERIN TARTRATE
     Indication: Delusion
  4. ELIQUIS [Concomitant]
     Active Substance: APIXABAN
     Dosage: 2.5 MG, BID
     Route: 048
  5. LIPITOR [Concomitant]
     Active Substance: ATORVASTATIN CALCIUM
     Dosage: 20 MILLIGRAM, QD
  6. CALTRATE D3 [Concomitant]
     Dosage: 1 TAB, QD
     Route: 048
  7. KLONOPIN [Concomitant]
     Active Substance: CLONAZEPAM
     Dosage: 1 MILLIGRAM, QD BEDTIME
     Route: 048
  8. COLACE [Concomitant]
     Active Substance: DOCUSATE SODIUM
     Dosage: UNK
     Route: 048
  9. ARICEPT [Concomitant]
     Active Substance: DONEPEZIL HYDROCHLORIDE
     Dosage: 10 MILLIGRAM, QD
     Route: 048
  10. NEURONTIN [Concomitant]
     Active Substance: GABAPENTIN
     Indication: Pain in extremity
     Dosage: 100 MILLIGRAM, TID
  11. NORCO [Concomitant]
     Active Substance: ACETAMINOPHEN\HYDROCODONE BITARTRATE
     Dosage: 5-325 MG, 1 TAB Q6 HRS
     Route: 048
  12. VASCEPA [Concomitant]
     Active Substance: ICOSAPENT ETHYL
     Dosage: 1 GRAM, BID
     Route: 048
  13. DULCOLAX (BISACODYL) [Concomitant]
     Active Substance: BISACODYL
     Route: 048
  14. MELATONIN [Concomitant]
     Active Substance: MELATONIN
     Dosage: 10 MILLIGRAM, NIGHTLY
     Route: 048
  15. MOBIC [Concomitant]
     Active Substance: MELOXICAM
     Dosage: 15 MILLIGRAM
     Route: 048
  16. PROAMATINE [Concomitant]
     Active Substance: MIDODRINE HYDROCHLORIDE
     Dosage: 2.5 MG, TID
     Route: 048
  17. ADALAT CC [Concomitant]
     Active Substance: NIFEDIPINE
     Indication: Blood pressure systolic increased
     Dosage: 60 MILLIGRAM, PRN
     Route: 048
  18. SEROQUEL [Concomitant]
     Active Substance: QUETIAPINE FUMARATE
     Dosage: 25 MILLIGRAM, BID
     Route: 048
  19. DEMADEX [Concomitant]
     Active Substance: TORSEMIDE
     Dosage: 20 MILLIGRAM, 2 TIMES WEEKLY
     Route: 048
  20. EFFEXOR [Concomitant]
     Active Substance: VENLAFAXINE HYDROCHLORIDE
     Dosage: 75 MILLIGRAM, QD
     Route: 048

REACTIONS (2)
  - Hallucination [Unknown]
  - Bedridden [Not Recovered/Not Resolved]

NARRATIVE: CASE EVENT DATE: 20211001
